FAERS Safety Report 6155287-4 (Version None)
Quarter: 2009Q2

REPORT INFORMATION
  Report Type: 
  Country: None (occurrence: None)
  Receive Date: 20090415
  Receipt Date: 20090408
  Transmission Date: 20091009
  Serious: Yes (Other)
  Sender: FDA-Public Use
  Company Number: CA-BAYER-200917928NA

PATIENT
  Age: 48 Year
  Sex: Male

DRUGS (3)
  1. CIPRO XR [Suspect]
     Indication: DRUG USE FOR UNKNOWN INDICATION
  2. MALARONE [Suspect]
     Indication: DRUG USE FOR UNKNOWN INDICATION
  3. MALARONE [Suspect]

REACTIONS (3)
  - ACCOMMODATION DISORDER [None]
  - VISION BLURRED [None]
  - VISUAL IMPAIRMENT [None]
